FAERS Safety Report 5974125-3 (Version None)
Quarter: 2008Q4

REPORT INFORMATION
  Report Type: 
  Country: None (occurrence: None)
  Receive Date: 20081201
  Receipt Date: 20081120
  Transmission Date: 20090506
  Serious: Yes (Other)
  Sender: FDA-Public Use
  Company Number: US-PFIZER INC-2008098647

PATIENT
  Sex: Female
  Weight: 86.2 kg

DRUGS (2)
  1. DILANTIN [Suspect]
     Indication: CONVULSION
     Dosage: DAILY DOSE:400MG
  2. ASPARTAME [Suspect]

REACTIONS (4)
  - BALANCE DISORDER [None]
  - CONVULSION [None]
  - EPILEPTIC AURA [None]
  - MOOD ALTERED [None]
